FAERS Safety Report 5385801-8 (Version None)
Quarter: 2007Q3

REPORT INFORMATION
  Report Type: 
  Country: None (occurrence: None)
  Receive Date: 20070710
  Receipt Date: 20070111
  Transmission Date: 20080115
  Serious: Yes (Hospitalization)
  Sender: FDA-Public Use
  Company Number: US-2006-034579

PATIENT
  Age: 33 Year
  Sex: Female
  Weight: 134 kg

DRUGS (8)
  1. YASMIN [Suspect]
     Indication: MENORRHAGIA
     Dosage: 2 TAB(S), 1X/DAY, ORAL
     Route: 048
     Dates: start: 20060601, end: 20060915
  2. SYNTHROID [Concomitant]
  3. ZONEGRAN [Concomitant]
  4. NEXIUM [Concomitant]
  5. ALBUTEROL [Concomitant]
  6. PULMICORT [Concomitant]
  7. EFFEXOR [Concomitant]
  8. ANAPROX [Concomitant]

REACTIONS (4)
  - LUNG NEOPLASM [None]
  - MUSCLE SPASMS [None]
  - PHARYNGOLARYNGEAL PAIN [None]
  - PULMONARY EMBOLISM [None]
